FAERS Safety Report 7289757 (Version 8)
Quarter: 2015Q1

REPORT INFORMATION
  Report Type: Spontaneous
  Country: US (occurrence: US)
  Receive Date: 20100223
  Receipt Date: 20150121
  Transmission Date: 20150721
  Serious: Yes (Hospitalization, Other)
  Sender: FDA-Public Use
  Company Number: US-BAYER-201014294NA

PATIENT
  Age: 19 Year
  Sex: Female
  Weight: 84 kg

DRUGS (9)
  1. KEPPRA [Concomitant]
     Active Substance: LEVETIRACETAM
     Indication: ISCHAEMIC CEREBRAL INFARCTION
  2. CETIRIZINE [Concomitant]
     Active Substance: CETIRIZINE HYDROCHLORIDE
     Indication: PRODUCT USED FOR UNKNOWN INDICATION
     Route: 048
  3. YASMIN [Suspect]
     Active Substance: DROSPIRENONE\ETHINYL ESTRADIOL
     Indication: PREMENSTRUAL SYNDROME
     Dosage: UNK
     Route: 048
     Dates: start: 20060810, end: 20080220
  4. YASMIN [Suspect]
     Active Substance: DROSPIRENONE\ETHINYL ESTRADIOL
     Indication: ORAL CONTRACEPTION
  5. PREDNISONE. [Concomitant]
     Active Substance: PREDNISONE
  6. DORYX [Concomitant]
     Active Substance: DOXYCYCLINE HYCLATE
  7. DEPACON [Concomitant]
     Active Substance: VALPROATE SODIUM
  8. LIPITOR [Concomitant]
     Active Substance: ATORVASTATIN CALCIUM
     Indication: BLOOD CHOLESTEROL INCREASED
  9. PROTOPIC [Concomitant]
     Active Substance: TACROLIMUS
     Indication: PRODUCT USED FOR UNKNOWN INDICATION
     Route: 065

REACTIONS (18)
  - Cerebral artery occlusion [Recovered/Resolved]
  - Impetigo [None]
  - Apraxia [None]
  - Dermatitis atopic [None]
  - Paranoia [None]
  - Hypoaesthesia [None]
  - Hallucination [None]
  - Anxiety disorder [None]
  - VIIth nerve paralysis [None]
  - Aphasia [None]
  - Seizure [None]
  - Depression [None]
  - Agoraphobia [None]
  - Memory impairment [None]
  - Ischaemic stroke [None]
  - Cerebral infarction [None]
  - Post-traumatic stress disorder [None]
  - Vascular dementia [None]

NARRATIVE: CASE EVENT DATE: 20070119
